FAERS Safety Report 13737788 (Version 1)
Quarter: 2017Q3

REPORT INFORMATION
  Report Type: Report from Study
  Country: US (occurrence: US)
  Receive Date: 20170710
  Receipt Date: 20170710
  Transmission Date: 20171127
  Serious: No
  Sender: FDA-Public Use
  Company Number: US-SAOL THERAPEUTICS-2016SAO00751

PATIENT
  Age: 51 Year
  Sex: Male

DRUGS (12)
  1. COMPOUNDED BACLOFEN [Suspect]
     Active Substance: BACLOFEN
     Dosage: 265.78 ?G, \DAY
     Route: 037
  2. BUPIVACAINE. [Suspect]
     Active Substance: BUPIVACAINE
     Dosage: 16.611 MG, \DAY
     Route: 037
     Dates: start: 20160316
  3. COMPOUNDED BACLOFEN [Suspect]
     Active Substance: BACLOFEN
     Indication: PAIN
     Dosage: 250.35 ?G, \DAY
     Route: 037
  4. CLONIDINE. [Suspect]
     Active Substance: CLONIDINE
     Dosage: 332.23 ?G, \DAY
     Route: 037
     Dates: start: 20160316
  5. COMPOUNDED BACLOFEN [Suspect]
     Active Substance: BACLOFEN
     Dosage: 225.61 ?G, \DAY
     Route: 037
  6. FENTANYL. [Suspect]
     Active Substance: FENTANYL
     Dosage: 265.78 ?G, \DAY
     Route: 037
     Dates: start: 20160316
  7. FENTANYL. [Suspect]
     Active Substance: FENTANYL
     Dosage: 225.61 ?G, \DAY
     Route: 037
  8. CLONIDINE. [Suspect]
     Active Substance: CLONIDINE
     Dosage: 312.94 ?G, \DAY
     Route: 037
  9. BUPIVACAINE. [Suspect]
     Active Substance: BUPIVACAINE
     Dosage: 15.647 MG, \DAY
     Route: 037
  10. BUPIVACAINE. [Suspect]
     Active Substance: BUPIVACAINE
     Dosage: 14.1 MG, \DAY
     Route: 037
  11. FENTANYL. [Suspect]
     Active Substance: FENTANYL
     Dosage: 250.35 ?G, \DAY
     Route: 037
  12. CLONIDINE. [Suspect]
     Active Substance: CLONIDINE
     Dosage: 282.01 ?G, \DAY
     Route: 037

REACTIONS (2)
  - Implant site extravasation [Recovered/Resolved]
  - Seroma [Recovered/Resolved]

NARRATIVE: CASE EVENT DATE: 20160316
